FAERS Safety Report 20064930 (Version 1)
Quarter: 2021Q4

REPORT INFORMATION
  Report Type: Spontaneous
  Country: US (occurrence: US)
  Receive Date: 20211113
  Receipt Date: 20211113
  Transmission Date: 20220303
  Serious: No
  Sender: FDA-Public Use
  Company Number: US-CELGENE-USA-20211101088

PATIENT
  Age: 77 Year
  Sex: Female

DRUGS (4)
  1. REVLIMID [Suspect]
     Active Substance: LENALIDOMIDE
     Indication: Plasma cell myeloma
     Dosage: 15 MG
     Route: 048
     Dates: start: 201507
  2. REVLIMID [Suspect]
     Active Substance: LENALIDOMIDE
     Dosage: 10 MG
     Route: 048
     Dates: start: 201606
  3. REVLIMID [Suspect]
     Active Substance: LENALIDOMIDE
     Dosage: 5 MG
     Route: 048
     Dates: start: 201703
  4. REVLIMID [Suspect]
     Active Substance: LENALIDOMIDE
     Dosage: 15 MG
     Route: 048
     Dates: start: 202005

REACTIONS (1)
  - Skin discolouration [Unknown]

NARRATIVE: CASE EVENT DATE: 20211026
